FAERS Safety Report 9414086 (Version 1)
Quarter: 2013Q3

REPORT INFORMATION
  Report Type: Spontaneous
  Country: None (occurrence: None)
  Receive Date: 20130709
  Receipt Date: 20130709
  Transmission Date: 20140515
  Serious: Yes (Hospitalization, Other)
  Sender: FDA-Public Use
  Company Number: AUR-APL-2009-00272

PATIENT
  Age: 57 Year
  Sex: Male

DRUGS (4)
  1. CIPROFLOXACIN [Suspect]
     Indication: LEGIONELLA INFECTION
  2. IMIPENEM [Suspect]
     Indication: LEGIONELLA INFECTION
  3. CEFOZOPRAN [Suspect]
     Indication: PRODUCT USED FOR UNKNOWN INDICATION
  4. INSULIN [Concomitant]

REACTIONS (3)
  - Renal failure acute [None]
  - Continuous haemodiafiltration [None]
  - Acute respiratory distress syndrome [None]
